FAERS Safety Report 22285897 (Version 2)
Quarter: 2023Q2

REPORT INFORMATION
  Report Type: Report from Study
  Country: US (occurrence: US)
  Receive Date: 20230505
  Receipt Date: 20230508
  Transmission Date: 20230721
  Serious: Yes (Other)
  Sender: FDA-Public Use
  Company Number: US-ABBVIE-4751452

PATIENT
  Age: 33 Year
  Sex: Male
  Weight: 116 kg

DRUGS (1)
  1. MAVYRET [Suspect]
     Active Substance: GLECAPREVIR\PIBRENTASVIR
     Indication: Chronic hepatitis C
     Dosage: TIME INTERVAL: 0.33333333 DAYS
     Route: 048
     Dates: start: 202301, end: 202303

REACTIONS (2)
  - False positive investigation result [Not Recovered/Not Resolved]
  - Drug abuser [Unknown]

NARRATIVE: CASE EVENT DATE: 20230101
